FAERS Safety Report 9457292 (Version 2)
Quarter: 2013Q3

REPORT INFORMATION
  Report Type: Spontaneous
  Country: JP (occurrence: JP)
  Receive Date: 20130814
  Receipt Date: 20130903
  Transmission Date: 20140515
  Serious: Yes (Hospitalization, Disabling)
  Sender: FDA-Public Use
  Company Number: JP-009507513-1308JPN004623

PATIENT
  Age: 61 Year
  Sex: Female
  Weight: 46 kg

DRUGS (4)
  1. JANUVIA TABLETS 50MG [Suspect]
     Indication: DIABETES MELLITUS
     Dosage: 50 MG, QD
     Route: 048
     Dates: end: 20130513
  2. SULPIRIDE [Suspect]
     Dosage: 50 MG, BID
     Route: 048
     Dates: end: 20130513
  3. DOMPERIDONE [Suspect]
     Dosage: 10 MG, BID
     Route: 048
     Dates: end: 20130513
  4. FAMOTIDINE [Suspect]
     Dosage: 20 MG, BID
     Route: 048
     Dates: end: 20130513

REACTIONS (1)
  - Interstitial lung disease [Recovering/Resolving]
